FAERS Safety Report 13918658 (Version 1)
Quarter: 2017Q3

REPORT INFORMATION
  Report Type: Spontaneous
  Country: US (occurrence: US)
  Receive Date: 20170829
  Receipt Date: 20170829
  Transmission Date: 20171127
  Serious: Yes (Hospitalization, Other)
  Sender: FDA-Public Use
  Company Number: US-AMGEN-USASP2017128398

PATIENT
  Age: 58 Year
  Sex: Male

DRUGS (2)
  1. ADALIMUMAB [Concomitant]
     Active Substance: ADALIMUMAB
     Dosage: UNK
  2. ETANERCEPT [Suspect]
     Active Substance: ETANERCEPT
     Indication: PSORIASIS
     Dosage: UNK
     Route: 065

REACTIONS (9)
  - Lymphadenopathy [Recovering/Resolving]
  - Sarcoidosis [Unknown]
  - White blood cell count increased [Recovered/Resolved]
  - Mental disorder [Recovering/Resolving]
  - Cough [Unknown]
  - Somnolence [Unknown]
  - Drug effect incomplete [Unknown]
  - Headache [Recovering/Resolving]
  - Psoriasis [Unknown]
